FAERS Safety Report 19083754 (Version 3)
Quarter: 2021Q2

REPORT INFORMATION
  Report Type: Report from Study
  Country: US (occurrence: US)
  Receive Date: 20210401
  Receipt Date: 20210430
  Transmission Date: 20210717
  Serious: Yes (Other)
  Sender: FDA-Public Use
  Company Number: NVSC2021US071657

PATIENT
  Age: 62 Year
  Sex: Female
  Weight: 40.82 kg

DRUGS (3)
  1. MAYZENT [Suspect]
     Active Substance: SIPONIMOD
     Indication: CLINICALLY ISOLATED SYNDROME
     Dosage: 0.25 MG, QD (TITRATION DOSE)
     Route: 048
     Dates: start: 20210326
  2. MAYZENT [Suspect]
     Active Substance: SIPONIMOD
     Indication: RELAPSING-REMITTING MULTIPLE SCLEROSIS
     Dosage: 2 MG, QD
     Route: 048
  3. MAYZENT [Suspect]
     Active Substance: SIPONIMOD
     Indication: SECONDARY PROGRESSIVE MULTIPLE SCLEROSIS

REACTIONS (9)
  - Product storage error [Unknown]
  - Hypoaesthesia [Unknown]
  - Energy increased [Unknown]
  - Dizziness [Unknown]
  - Vomiting [Unknown]
  - Tremor [Not Recovered/Not Resolved]
  - Nausea [Unknown]
  - Hallucination [Unknown]
  - Palpitations [Unknown]

NARRATIVE: CASE EVENT DATE: 20210326
